FAERS Safety Report 8510986-1 (Version None)
Quarter: 2012Q3

REPORT INFORMATION
  Report Type: 
  Country: None (occurrence: None)
  Receive Date: 20120716
  Receipt Date: 20120711
  Transmission Date: 20120928
  Serious: Yes (Hospitalization)
  Sender: FDA-Public Use
  Company Number: GB-JNJFOC-20120705729

PATIENT
  Sex: Male
  Weight: 47.8 kg

DRUGS (3)
  1. AZATHIOPRINE [Concomitant]
  2. MESALAMINE [Concomitant]
  3. REMICADE [Suspect]
     Indication: CROHN'S DISEASE
     Route: 042
     Dates: start: 20111121

REACTIONS (1)
  - CONSTIPATION [None]
